FAERS Safety Report 6772823-5 (Version None)
Quarter: 2010Q2

REPORT INFORMATION
  Report Type: 
  Country: None (occurrence: None)
  Receive Date: 20100616
  Receipt Date: 20100609
  Transmission Date: 20101027
  Serious: Yes (Hospitalization)
  Sender: FDA-Public Use
  Company Number: FR-BRISTOL-MYERS SQUIBB COMPANY-15145873

PATIENT
  Age: 73 Year
  Sex: Male

DRUGS (21)
  1. GLUCOPHAGE [Suspect]
     Indication: DIABETES MELLITUS
     Route: 048
     Dates: start: 20090101, end: 20100407
  2. DAFALGAN [Suspect]
     Indication: BACK PAIN
     Dates: start: 20100409, end: 20100413
  3. CITALOPRAM HYDROBROMIDE [Suspect]
     Indication: DEPRESSION
     Route: 048
     Dates: start: 20100410, end: 20100413
  4. PERINDOPRIL [Suspect]
     Indication: HYPERTENSION
     Route: 048
     Dates: start: 20090101, end: 20100408
  5. THIOCOLCHICOSIDE [Suspect]
     Indication: BACK PAIN
     Route: 048
     Dates: start: 20100407, end: 20100414
  6. LIPANTHYL [Suspect]
     Indication: DYSLIPIDAEMIA
     Dates: start: 20090101, end: 20100413
  7. PREVISCAN [Suspect]
     Indication: ATRIAL FIBRILLATION
     Dosage: PREVISCAN 20 MG TABS
     Route: 048
     Dates: start: 20090101, end: 20100413
  8. TOPALGIC LP [Suspect]
     Indication: BACK PAIN
     Route: 048
     Dates: start: 20100407, end: 20100414
  9. MYSOLINE [Suspect]
     Indication: ESSENTIAL TREMOR
     Dosage: MYSOLINE 250MG TABS
     Route: 048
     Dates: start: 20090101, end: 20100413
  10. LOXEN [Suspect]
     Indication: HYPERTENSION
     Route: 048
     Dates: start: 20100411, end: 20100413
  11. IMOVANE [Concomitant]
     Dates: start: 20100101
  12. LASIX [Concomitant]
     Dates: start: 20100101
  13. MOLSIDOMINE [Concomitant]
     Dates: start: 20100101
  14. NOVOMIX [Concomitant]
     Dates: start: 20100101
  15. RAMIPRIL [Concomitant]
     Dates: start: 20100101
  16. CREON [Concomitant]
     Dates: start: 20100101, end: 20100414
  17. DOLIPRANE [Concomitant]
     Dates: start: 20100407, end: 20100409
  18. KAYEXALATE [Concomitant]
     Dates: start: 20100408, end: 20100409
  19. FORLAX [Concomitant]
     Dates: start: 20100411, end: 20100417
  20. ISOPTIN SR [Concomitant]
  21. NEXIUM [Concomitant]

REACTIONS (4)
  - ALANINE AMINOTRANSFERASE INCREASED [None]
  - ASPARTATE AMINOTRANSFERASE INCREASED [None]
  - BACK PAIN [None]
  - CYTOLYTIC HEPATITIS [None]
